FAERS Safety Report 8674256 (Version 2)
Quarter: 2012Q4

REPORT INFORMATION
  Report Type: 
  Country: JP (occurrence: JP)
  Receive Date: 20120719
  Receipt Date: 20120830
  Transmission Date: 20130627
  Serious: Yes (Hospitalization, Other)
  Sender: FDA-Public Use
  Company Number: JP-B.I. PHARMACEUTICALS,INC./RIDGEFIELD-2012-BP-15856NB

PATIENT
  Age: 64 Year
  Sex: Male
  Weight: 43.2 kg

DRUGS (16)
  1. PRADAXA [Suspect]
     Indication: ATRIAL FIBRILLATION
     Dosage: 220 mg
     Route: 048
     Dates: start: 20110607, end: 20120308
  2. PRADAXA [Suspect]
     Dosage: 300 mg
     Route: 048
     Dates: start: 20120309, end: 20120426
  3. VERAPAMIL [Suspect]
     Indication: ATRIAL FIBRILLATION
     Dosage: 120 mg
     Route: 048
     Dates: start: 20120217, end: 20120426
  4. ALDACTONE A [Concomitant]
     Dosage: 12.5 mg
     Route: 065
  5. LASIX [Concomitant]
     Dosage: 20 mg
     Route: 065
  6. MAINTATE [Concomitant]
     Indication: ATRIAL FIBRILLATION
     Dosage: 1.25 mg
     Route: 048
     Dates: start: 20110607, end: 20120426
  7. AVAPRO [Concomitant]
     Indication: ATRIAL FIBRILLATION
     Dosage: 100 mg
     Route: 048
     Dates: start: 20110607
  8. URSO [Concomitant]
     Indication: ALCOHOLIC LIVER DISEASE
     Dosage: 150 mg
     Route: 048
     Dates: start: 20110607, end: 20120426
  9. PRIMPERAN [Concomitant]
     Indication: HICCUPS
     Dosage: 15 mg
     Route: 048
     Dates: start: 20110607, end: 20110713
  10. ZITHROMAC SR [Concomitant]
     Indication: PNEUMONIA
     Dosage: 2 g
     Route: 048
     Dates: start: 20110713, end: 20110713
  11. CALONAL [Concomitant]
     Indication: PNEUMONIA
     Dosage: 400 mg
     Route: 048
     Dates: start: 20110713, end: 20110713
  12. GABALON [Concomitant]
     Indication: HICCUPS
     Dosage: 15 mg
     Route: 048
     Dates: start: 20110713, end: 20110717
  13. VFEND [Concomitant]
     Indication: ORGANISING PNEUMONIA
     Dosage: 600 mg
     Route: 048
     Dates: start: 20120110, end: 20120426
  14. PREDONINE [Concomitant]
     Indication: ORGANISING PNEUMONIA
     Dosage: 15 mg
     Route: 048
     Dates: start: 20120112, end: 20120426
  15. BACTRAMIN [Concomitant]
     Indication: ORGANISING PNEUMONIA
     Dosage: 1 g
     Route: 048
     Dates: start: 20111216, end: 20120426
  16. BONALON 35MG [Concomitant]
     Indication: OSTEOPOROSIS
     Dosage: 35 g
     Route: 048
     Dates: start: 20120113, end: 20120426

REACTIONS (12)
  - Cerebral haemorrhage [Recovered/Resolved with Sequelae]
  - Hemiplegia [Not Recovered/Not Resolved]
  - Hiccups [None]
  - Pneumonia [None]
  - Organising pneumonia [None]
  - Osteoporosis [None]
  - Blood alkaline phosphatase increased [None]
  - Blood glucose increased [None]
  - Haemoglobin decreased [None]
  - Haematocrit decreased [None]
  - Platelet count decreased [None]
  - White blood cell count increased [None]
